FAERS Safety Report 19970648 (Version 2)
Quarter: 2021Q4

REPORT INFORMATION
  Report Type: Report from Study
  Country: JP (occurrence: JP)
  Receive Date: 20211019
  Receipt Date: 20211120
  Transmission Date: 20220303
  Serious: Yes (Death, Hospitalization, Other)
  Sender: FDA-Public Use
  Company Number: JP-JNJFOC-A-CH2020-201599

PATIENT
  Age: 13 Year
  Sex: Female
  Weight: 30.7 kg

DRUGS (20)
  1. UPTRAVI [Suspect]
     Active Substance: SELEXIPAG
     Indication: Pulmonary arterial hypertension
     Dosage: 0.48 MG, BID
     Route: 048
     Dates: start: 20180613, end: 20180712
  2. UPTRAVI [Suspect]
     Active Substance: SELEXIPAG
     Dosage: 0.12 MG, BID
     Route: 048
     Dates: start: 20180301, end: 20180405
  3. UPTRAVI [Suspect]
     Active Substance: SELEXIPAG
     Dosage: 0.24 MG, BID
     Route: 048
     Dates: start: 20180406, end: 20180510
  4. UPTRAVI [Suspect]
     Active Substance: SELEXIPAG
     Dosage: 0.36 MG, BID
     Route: 048
     Dates: start: 20180511, end: 20180612
  5. UPTRAVI [Suspect]
     Active Substance: SELEXIPAG
     Dosage: 0.6 MG, BID
     Route: 048
     Dates: start: 20180713, end: 20180913
  6. UPTRAVI [Suspect]
     Active Substance: SELEXIPAG
     Route: 048
     Dates: start: 20190409
  7. UPTRAVI [Suspect]
     Active Substance: SELEXIPAG
     Route: 048
     Dates: start: 20190517
  8. UPTRAVI [Suspect]
     Active Substance: SELEXIPAG
     Route: 048
     Dates: start: 20190614
  9. UPTRAVI [Suspect]
     Active Substance: SELEXIPAG
     Route: 048
     Dates: start: 20200904
  10. ADCIRCA [Concomitant]
     Active Substance: TADALAFIL
     Indication: Pulmonary arterial hypertension
     Dosage: 33 MG, QD
     Route: 048
     Dates: start: 20170406
  11. OPSUMIT [Concomitant]
     Active Substance: MACITENTAN
     Indication: Pulmonary arterial hypertension
     Dosage: 6.6 MG, QD
     Dates: start: 20170406
  12. WARFARIN [Concomitant]
     Active Substance: WARFARIN
     Dosage: 3 MG, QD
     Dates: start: 20170812, end: 20180628
  13. WARFARIN [Concomitant]
     Active Substance: WARFARIN
     Dosage: 3 MG, QD
     Dates: start: 20180630, end: 20180704
  14. WARFARIN [Concomitant]
     Active Substance: WARFARIN
     Dosage: 3 MG, QD
     Dates: start: 20180706, end: 20180913
  15. WARFARIN [Concomitant]
     Active Substance: WARFARIN
     Dates: start: 20180914
  16. SAMSCA [Concomitant]
     Active Substance: TOLVAPTAN
     Dosage: 10 MG, QD
     Dates: start: 20180213
  17. FUROSEMIDE [Concomitant]
     Active Substance: FUROSEMIDE
     Dosage: 75 MG, QD
     Dates: start: 20150421
  18. SPIRONOLACTONE [Concomitant]
     Active Substance: SPIRONOLACTONE
     Dosage: 75 MG, QD
     Dates: start: 20150421
  19. ENALAPRIL MALEATE [Concomitant]
     Active Substance: ENALAPRIL MALEATE
     Dosage: 6.6 MG, QD
     Dates: start: 20170406
  20. ASPIRIN [Concomitant]
     Active Substance: ASPIRIN
     Dosage: 165 MG, QD
     Dates: start: 20170407

REACTIONS (15)
  - Circulatory collapse [Fatal]
  - Hyperthyroidism [Not Recovered/Not Resolved]
  - Cardiac failure [Not Recovered/Not Resolved]
  - Respiratory failure [Not Recovered/Not Resolved]
  - Renal impairment [Not Recovered/Not Resolved]
  - Protein-losing gastroenteropathy [Unknown]
  - Sepsis [Not Recovered/Not Resolved]
  - Haemorrhage [Not Recovered/Not Resolved]
  - Pertussis [Recovered/Resolved]
  - Thyroiditis [Not Recovered/Not Resolved]
  - Pleural effusion [Not Recovered/Not Resolved]
  - Infection [Not Recovered/Not Resolved]
  - Pyrexia [Unknown]
  - Tachypnoea [Unknown]
  - Generalised oedema [Unknown]

NARRATIVE: CASE EVENT DATE: 20180612
